FAERS Safety Report 8561730-3 (Version None)
Quarter: 2012Q3

REPORT INFORMATION
  Report Type: 
  Country: None (occurrence: None)
  Receive Date: 20120802
  Receipt Date: 20120725
  Transmission Date: 20120928
  Serious: Yes (Other)
  Sender: FDA-Public Use
  Company Number: JP-BAXTER-2012BAX009263

PATIENT
  Age: 77 Year
  Sex: Female
  Weight: 58 kg

DRUGS (15)
  1. DROPERIDOL [Concomitant]
     Indication: PROPHYLAXIS
     Dates: start: 20120604, end: 20120607
  2. SUPRANE [Suspect]
     Dates: start: 20120604, end: 20120604
  3. EPHEDRIN [Suspect]
     Route: 042
     Dates: start: 20120604, end: 20120604
  4. EPHEDRIN [Suspect]
     Indication: HAEMOSTASIS
     Route: 042
     Dates: start: 20120604, end: 20120604
  5. PROPOFOL [Concomitant]
     Indication: INDUCTION OF ANAESTHESIA
     Route: 040
     Dates: start: 20120604, end: 20120604
  6. ULTIVA [Concomitant]
     Indication: MAINTENANCE OF ANAESTHESIA
     Route: 042
     Dates: start: 20120604, end: 20120617
  7. ROPIVACAINE HYDROCHLORIDE [Concomitant]
     Indication: ANALGESIC THERAPY
     Dates: start: 20120604, end: 20120607
  8. PICILLIBACTA [Concomitant]
     Indication: ANTIBIOTIC PROPHYLAXIS
     Route: 042
     Dates: start: 20120604, end: 20120607
  9. SUGAMMADEX SODIUM [Concomitant]
     Indication: ANAESTHESIA REVERSAL
     Route: 040
     Dates: start: 20120604, end: 20120604
  10. ULTIVA [Concomitant]
     Indication: INDUCTION OF ANAESTHESIA
  11. FLURBIPROFEN [Concomitant]
     Indication: PROPHYLAXIS
  12. ROCURONIUM BROMIDE [Concomitant]
     Route: 040
     Dates: start: 20120604, end: 20120604
  13. ROCURONIUM BROMIDE [Concomitant]
     Indication: INDUCTION OF ANAESTHESIA
     Route: 042
     Dates: start: 20120604, end: 20120604
  14. FLURBIPROFEN [Concomitant]
     Indication: ANALGESIC THERAPY
     Route: 042
     Dates: start: 20120604, end: 20120604
  15. FENTANYL CITRATE [Concomitant]
     Indication: ANALGESIC THERAPY
     Dates: start: 20120604, end: 20120607

REACTIONS (2)
  - DRUG INEFFECTIVE [None]
  - ELECTROCARDIOGRAM ST SEGMENT DEPRESSION [None]
